FAERS Safety Report 12909512 (Version 2)
Quarter: 2016Q4

REPORT INFORMATION
  Report Type: Spontaneous
  Country: US (occurrence: US)
  Receive Date: 20161104
  Receipt Date: 20161122
  Transmission Date: 20170207
  Serious: Yes (Other)
  Sender: FDA-Public Use
  Company Number: US-009507513-1610USA016806

PATIENT
  Sex: Female

DRUGS (2)
  1. ZEPATIER [Suspect]
     Active Substance: ELBASVIR\GRAZOPREVIR
     Indication: HEPATITIS C
     Dosage: ONE TABLET DAILY FOR 12 WEEKS
     Route: 048
  2. HEMP [Concomitant]
     Active Substance: HEMP

REACTIONS (2)
  - Viral load increased [Unknown]
  - Hepatitis C [Unknown]
